FAERS Safety Report 10204134 (Version 1)
Quarter: 2014Q2

REPORT INFORMATION
  Report Type: Spontaneous
  Country: US (occurrence: None)
  Receive Date: 20140527
  Receipt Date: 20140527
  Transmission Date: 20141212
  Serious: Yes (Death)
  Sender: FDA-Public Use
  Company Number: SYM-2014-21288

PATIENT
  Sex: Male

DRUGS (1)
  1. XENAZINE [Suspect]
     Indication: HUNTINGTON^S DISEASE
     Dosage: 1 TAB IN AM, 1/2 TAB IN AFTERNOON, 1/2 TAB IN PM, DAILY, ORAL
     Route: 048
     Dates: start: 20140409, end: 20140506

REACTIONS (1)
  - Death [None]
